FAERS Safety Report 5201551-2 (Version None)
Quarter: 2007Q1

REPORT INFORMATION
  Report Type: 
  Country: None (occurrence: None)
  Receive Date: 20070108
  Receipt Date: 20061227
  Transmission Date: 20070707
  Serious: Yes (Other)
  Sender: FDA-Public Use
  Company Number: US-PFIZER INC-2007000030

PATIENT
  Sex: Female
  Weight: 62.1 kg

DRUGS (4)
  1. DEPO-SUBQ PROVERA 104 [Suspect]
     Indication: CONTRACEPTION
     Route: 058
     Dates: start: 20060823, end: 20060823
  2. DEPO-SUBQ PROVERA 104 [Suspect]
     Route: 058
     Dates: start: 20061101, end: 20061101
  3. PREGABALIN [Suspect]
     Indication: NEURALGIA
  4. TEGRETOL [Suspect]
     Indication: TRIGEMINAL NEURALGIA

REACTIONS (5)
  - DYSPNOEA [None]
  - HYPERVENTILATION [None]
  - METRORRHAGIA [None]
  - PANIC ATTACK [None]
  - WEIGHT INCREASED [None]
